FAERS Safety Report 8154909-6 (Version None)
Quarter: 2012Q1

REPORT INFORMATION
  Report Type: 
  Country: None (occurrence: None)
  Receive Date: 20120221
  Receipt Date: 20120215
  Transmission Date: 20120608
  Serious: Yes (Death, Other)
  Sender: FDA-Public Use
  Company Number: PHHY2012BD011562

PATIENT
  Age: 34 Year
  Sex: Male

DRUGS (1)
  1. SEBIVO [Suspect]
     Indication: HEPATITIS B
     Dosage: UNK
     Dates: start: 20090201

REACTIONS (2)
  - CARDIOPULMONARY FAILURE [None]
  - GENERALISED OEDEMA [None]
